FAERS Safety Report 8306222-1 (Version None)
Quarter: 2012Q2

REPORT INFORMATION
  Report Type: 
  Country: None (occurrence: None)
  Receive Date: 20120423
  Receipt Date: 20120416
  Transmission Date: 20120825
  Serious: Yes (Hospitalization, Other)
  Sender: FDA-Public Use
  Company Number: IT-ROCHE-1060268

PATIENT
  Sex: Male

DRUGS (11)
  1. ONDANSETRON [Concomitant]
     Route: 040
     Dates: start: 20111123, end: 20111125
  2. IFOSFAMIDE [Suspect]
     Indication: NON-HODGKIN'S LYMPHOMA
     Route: 042
     Dates: start: 20111123, end: 20111125
  3. CARBOPLATIN [Suspect]
     Indication: NON-HODGKIN'S LYMPHOMA
     Route: 042
     Dates: start: 20111123, end: 20111125
  4. CHLORPHENAMINE [Concomitant]
     Route: 040
  5. ALLOPURINOL [Concomitant]
     Route: 048
  6. ETOPOSIDE [Suspect]
     Indication: NON-HODGKIN'S LYMPHOMA
     Route: 042
     Dates: start: 20111128, end: 20111128
  7. ACETAMINOPHEN [Concomitant]
     Route: 048
     Dates: start: 20111128, end: 20111128
  8. MESNA [Concomitant]
     Route: 042
     Dates: start: 20111113, end: 20111125
  9. MABTHERA [Suspect]
     Indication: NON-HODGKIN'S LYMPHOMA
     Route: 042
     Dates: start: 20111128, end: 20111128
  10. NEULASTA [Concomitant]
     Route: 058
     Dates: start: 20111126, end: 20111126
  11. MYCOSTATIN [Concomitant]
     Route: 061
     Dates: start: 20111201, end: 20111205

REACTIONS (6)
  - MUCOSAL INFLAMMATION [None]
  - HYPERPYREXIA [None]
  - NEUTROPENIA [None]
  - APLASIA [None]
  - THROMBOCYTOPENIA [None]
  - LUNG INFECTION [None]
